FAERS Safety Report 15489625 (Version 1)
Quarter: 2018Q4

REPORT INFORMATION
  Report Type: Spontaneous
  Country: US (occurrence: US)
  Receive Date: 20181011
  Receipt Date: 20181011
  Transmission Date: 20190205
  Serious: No
  Sender: FDA-Public Use
  Company Number: US-ALLERGAN-1832172US

PATIENT
  Sex: Female
  Weight: 76.2 kg

DRUGS (4)
  1. ZOLOFT [Concomitant]
     Active Substance: SERTRALINE HYDROCHLORIDE
     Dosage: UNK UNK, QD
     Route: 065
  2. COMBIGAN [Suspect]
     Active Substance: BRIMONIDINE TARTRATE\TIMOLOL MALEATE
     Indication: NORMAL TENSION GLAUCOMA
     Dosage: 0.5 MG, BID
     Route: 047
  3. DORZOLAMIDE TIMOLOL [Suspect]
     Active Substance: DORZOLAMIDE
     Indication: PRODUCT USED FOR UNKNOWN INDICATION
     Dosage: UNK
     Route: 065
  4. XALATAN [Suspect]
     Active Substance: LATANOPROST
     Indication: PRODUCT USED FOR UNKNOWN INDICATION
     Dosage: UNK
     Route: 065

REACTIONS (9)
  - Skin irritation [Unknown]
  - Ocular hyperaemia [Unknown]
  - Dry eye [Unknown]
  - Eye swelling [Unknown]
  - Eye pruritus [Unknown]
  - Product formulation issue [Unknown]
  - Lacrimation increased [Unknown]
  - Drug intolerance [Unknown]
  - Drug ineffective [Unknown]
